FAERS Safety Report 4299822-X (Version None)
Quarter: 2004Q1

REPORT INFORMATION
  Report Type: 
  Country: None (occurrence: None)
  Receive Date: 20040219
  Receipt Date: 20031202
  Transmission Date: 20041129
  Serious: Yes (Disabling)
  Sender: FDA-Public Use
  Company Number: WAES 0312USA00342

PATIENT
  Age: 50 Year
  Sex: Female
  Weight: 97 kg

DRUGS (7)
  1. ZETIA [Suspect]
     Indication: BLOOD CHOLESTEROL INCREASED
     Route: 048
     Dates: start: 20031110, end: 20031101
  2. ZETIA [Suspect]
     Route: 048
     Dates: start: 20030101
  3. LOZOL [Concomitant]
  4. TOPROL-XL [Concomitant]
     Route: 048
  5. PROTONIX [Concomitant]
  6. ZOCOR [Concomitant]
     Route: 048
  7. ESTRACE [Concomitant]

REACTIONS (2)
  - BLOOD PRESSURE INCREASED [None]
  - HEADACHE [None]
